FAERS Safety Report 4918183-3 (Version None)
Quarter: 2006Q1

REPORT INFORMATION
  Report Type: 
  Country: None (occurrence: None)
  Receive Date: 20060215
  Receipt Date: 20060206
  Transmission Date: 20060701
  Serious: Yes (Hospitalization)
  Sender: FDA-Public Use
  Company Number: 2005167177

PATIENT
  Age: 29 Year
  Sex: Female

DRUGS (3)
  1. SUDAFED NASAL DECONGESTANT (PSEUDOEPHEDRINE) [Suspect]
     Dosage: ONE TABLET ONCE, ORAL
     Route: 048
     Dates: start: 20051210, end: 20051210
  2. LEVOTHYROXINE SODIUM [Concomitant]
  3. DRUG, (DRUG,) [Concomitant]

REACTIONS (4)
  - CHEST PAIN [None]
  - FEELING ABNORMAL [None]
  - PALLOR [None]
  - TREMOR [None]
